FAERS Safety Report 15285550 (Version 2)
Quarter: 2018Q3

REPORT INFORMATION
  Report Type: Spontaneous
  Country: US (occurrence: US)
  Receive Date: 20180816
  Receipt Date: 20180824
  Transmission Date: 20181010
  Serious: No
  Sender: FDA-Public Use
  Company Number: US-CELGENEUS-USA-20180802418

PATIENT
  Age: 51 Year
  Sex: Female

DRUGS (5)
  1. ENSTILAR [Concomitant]
     Active Substance: BETAMETHASONE DIPROPIONATE\CALCIPOTRIENE HYDRATE
     Indication: GUTTATE PSORIASIS
     Route: 061
     Dates: start: 20160831
  2. OTEZLA [Suspect]
     Active Substance: APREMILAST
     Indication: PSORIASIS
  3. OTEZLA [Suspect]
     Active Substance: APREMILAST
     Indication: GUTTATE PSORIASIS
     Dosage: STARTER PACK
     Route: 048
     Dates: start: 20160922
  4. OTEZLA [Suspect]
     Active Substance: APREMILAST
     Indication: PSORIASIS
  5. LISINOPRIL. [Concomitant]
     Active Substance: LISINOPRIL
     Indication: FLUID RETENTION
     Route: 065

REACTIONS (4)
  - Psoriasis [Recovering/Resolving]
  - Expired product administered [Unknown]
  - Stress [Unknown]
  - Oropharyngeal pain [Unknown]

NARRATIVE: CASE EVENT DATE: 2018
